FAERS Safety Report 13393668 (Version 2)
Quarter: 2017Q2

REPORT INFORMATION
  Report Type: Report from Study
  Country: US (occurrence: US)
  Receive Date: 20170331
  Receipt Date: 20170418
  Transmission Date: 20170830
  Serious: Yes (Death, Hospitalization, Other)
  Sender: FDA-Public Use
  Company Number: US-GILEAD-2017-0264919

PATIENT
  Age: 56 Year
  Sex: Male

DRUGS (5)
  1. XIFAXAN [Concomitant]
     Active Substance: RIFAXIMIN
  2. LACTULOSE. [Concomitant]
     Active Substance: LACTULOSE
  3. ALDACTONE [Concomitant]
     Active Substance: SPIRONOLACTONE
  4. SOFOSBUVIR W/VELPATASVIR [Suspect]
     Active Substance: SOFOSBUVIR\VELPATASVIR
     Indication: CHRONIC HEPATITIS C
     Dosage: 1 DF, UNK
     Route: 048
     Dates: start: 20161116, end: 20170213
  5. LASIX [Concomitant]
     Active Substance: FUROSEMIDE

REACTIONS (2)
  - Hepatic cirrhosis [Fatal]
  - Lymphoma [Fatal]

NARRATIVE: CASE EVENT DATE: 20170208
